FAERS Safety Report 9236235 (Version 1)
Quarter: 2013Q2

REPORT INFORMATION
  Report Type: Spontaneous
  Country: US (occurrence: None)
  Receive Date: 20130416
  Receipt Date: 20130416
  Transmission Date: 20140414
  Serious: No
  Sender: FDA-Public Use
  Company Number: None

PATIENT
  Age: 73 None
  Sex: Female
  Weight: 90.72 kg

DRUGS (1)
  1. BACTRIM [Suspect]
     Indication: URINARY TRACT INFECTION

REACTIONS (8)
  - Hypoaesthesia oral [None]
  - Hypoaesthesia oral [None]
  - Paraesthesia oral [None]
  - Paraesthesia oral [None]
  - Lip dry [None]
  - Skin exfoliation [None]
  - Skin discolouration [None]
  - Drug effect incomplete [None]
